FAERS Safety Report 10686154 (Version 2)
Quarter: 2015Q1

REPORT INFORMATION
  Report Type: Spontaneous
  Country: US (occurrence: US)
  Receive Date: 20141231
  Receipt Date: 20150108
  Transmission Date: 20150720
  Serious: Yes (Other)
  Sender: FDA-Public Use
  Company Number: US-PFIZER INC-2014357895

PATIENT
  Age: 67 Year
  Sex: Female

DRUGS (3)
  1. TOVIAZ [Suspect]
     Active Substance: FESOTERODINE FUMARATE
     Indication: HYPERTONIC BLADDER
     Dosage: 8 MG, DAILY
     Route: 048
     Dates: start: 2010
  2. FELDENE [Suspect]
     Active Substance: PIROXICAM
     Indication: ARTHRITIS
     Dosage: 20 MG, DAILY
     Route: 048
  3. PREMARIN [Suspect]
     Active Substance: ESTROGENS, CONJUGATED
     Indication: PREMATURE MENOPAUSE
     Dosage: 1.25 MG, 3X/WEEK

REACTIONS (1)
  - Arthralgia [Unknown]
